FAERS Safety Report 6931375-7 (Version None)
Quarter: 2010Q3

REPORT INFORMATION
  Report Type: 
  Country: None (occurrence: None)
  Receive Date: 20100819
  Receipt Date: 20100811
  Transmission Date: 20110219
  Serious: Yes (Hospitalization, Other)
  Sender: FDA-Public Use
  Company Number: US-JNJFOC-20100804283

PATIENT
  Sex: Female
  Weight: 108.86 kg

DRUGS (13)
  1. FENTANYL CITRATE [Suspect]
     Indication: PAIN
     Dosage: NDC: 0781-7242-55
     Route: 062
  2. FENTANYL CITRATE [Suspect]
     Route: 062
  3. METFORMIN HCL [Suspect]
     Indication: DIABETES MELLITUS
     Route: 048
  4. METFORMIN HCL [Suspect]
     Route: 048
  5. PROPRANOLOL [Concomitant]
     Indication: BLOOD PRESSURE
     Route: 048
  6. PROPRANOLOL [Concomitant]
     Indication: TREMOR
     Route: 048
  7. LEVOTHYROXINE [Concomitant]
     Indication: THYROID DISORDER
     Route: 048
  8. LORAZEPAM [Concomitant]
     Indication: ANXIETY
     Route: 048
  9. GLIPIZIDE [Concomitant]
     Indication: DIABETES MELLITUS
     Route: 048
  10. HYDROCODONE BITARTRATE [Concomitant]
     Indication: PAIN
     Dosage: 10/325 MG AS NEEDED
     Route: 048
  11. LISINOPRIL [Concomitant]
     Indication: BLOOD PRESSURE
     Dosage: 10/12.5 MG
     Route: 048
  12. AMLODIPINE [Concomitant]
     Indication: CARDIAC DISORDER
     Route: 048
  13. AMLODIPINE [Concomitant]
     Indication: BLOOD PRESSURE
     Route: 048

REACTIONS (7)
  - DENTAL CARIES [None]
  - PRODUCT ADHESION ISSUE [None]
  - PRODUCT QUALITY ISSUE [None]
  - RENAL FAILURE ACUTE [None]
  - UTERINE MASS [None]
  - UTERINE POLYP [None]
  - WRONG TECHNIQUE IN DRUG USAGE PROCESS [None]
